FAERS Safety Report 5044739-6 (Version None)
Quarter: 2006Q3

REPORT INFORMATION
  Report Type: 
  Country: None (occurrence: None)
  Receive Date: 20060707
  Receipt Date: 20060104
  Transmission Date: 20061208
  Serious: Yes (Other)
  Sender: FDA-Public Use
  Company Number: US-SOLVAY-00206001645

PATIENT
  Age: 25 Year
  Sex: Female

DRUGS (2)
  1. ENBREL [Concomitant]
     Indication: PSORIASIS
     Dosage: DAILY DOSE:  UNKNOWN
     Route: 048
     Dates: end: 20050902
  2. PROMETRIUM [Suspect]
     Indication: PRENATAL CARE
     Dosage: DAILY DOSE: 400 MILLIGRAM(S)
     Route: 048
     Dates: start: 20050906, end: 20051129

REACTIONS (3)
  - GESTATIONAL DIABETES [None]
  - HYPERTENSION [None]
  - PLACENTAL INFARCTION [None]
